FAERS Safety Report 7831109-8 (Version None)
Quarter: 2011Q4

REPORT INFORMATION
  Report Type: 
  Country: None (occurrence: None)
  Receive Date: 20111021
  Receipt Date: 20111018
  Transmission Date: 20120403
  Serious: Yes (Other)
  Sender: FDA-Public Use
  Company Number: GB-ABBOTT-11P-167-0866492-00

PATIENT
  Sex: Male

DRUGS (1)
  1. CREON [Suspect]
     Indication: CYSTIC FIBROSIS
     Route: 048

REACTIONS (1)
  - DISTAL INTESTINAL OBSTRUCTION SYNDROME [None]
